FAERS Safety Report 10738373 (Version 1)
Quarter: 2015Q1

REPORT INFORMATION
  Report Type: Spontaneous
  Country: US (occurrence: None)
  Receive Date: 20150123
  Receipt Date: 20150123
  Transmission Date: 20150721
  Serious: Yes (Life-Threatening, Hospitalization)
  Sender: FDA-Public Use
  Company Number: None

PATIENT
  Age: 72 Year
  Sex: Female
  Weight: 72.5 kg

DRUGS (3)
  1. GENTAMICIN. [Suspect]
     Active Substance: GENTAMICIN
     Indication: KNEE ARTHROPLASTY
     Route: 042
     Dates: start: 20150120
  2. BETADINE [Suspect]
     Active Substance: POVIDONE-IODINE
     Indication: CATHETER PLACEMENT
     Route: 061
     Dates: start: 20150120
  3. GENTAMICIN. [Suspect]
     Active Substance: GENTAMICIN
     Indication: INFECTION PROPHYLAXIS
     Route: 042
     Dates: start: 20150120

REACTIONS (6)
  - Swollen tongue [None]
  - Hypotension [None]
  - Eyelid oedema [None]
  - Pharyngeal oedema [None]
  - Rash erythematous [None]
  - Hypoxia [None]

NARRATIVE: CASE EVENT DATE: 20150120
